FAERS Safety Report 6199713-3 (Version None)
Quarter: 2009Q2

REPORT INFORMATION
  Report Type: 
  Country: None (occurrence: None)
  Receive Date: 20090522
  Receipt Date: 20090512
  Transmission Date: 20091009
  Serious: Yes (Hospitalization)
  Sender: FDA-Public Use
  Company Number: GB-PFIZER INC-2006070404

PATIENT
  Age: 51 Year

DRUGS (12)
  1. SILDENAFIL CITRATE [Suspect]
     Indication: PULMONARY HYPERTENSION
     Dosage: 80 MG, 3X/DAY
     Route: 048
     Dates: start: 20060128, end: 20070116
  2. *EPOPROSTENOL [Suspect]
     Indication: PULMONARY HYPERTENSION
     Dosage: 19 MG/KG/MIN
     Route: 042
     Dates: start: 20040616, end: 20070116
  3. WARFARIN SODIUM [Concomitant]
     Route: 048
     Dates: start: 20040508
  4. IBUPROFEN [Concomitant]
     Route: 048
     Dates: start: 20030101
  5. BUMETANIDE [Concomitant]
     Route: 048
     Dates: start: 20040101
  6. ALLOPURINOL [Concomitant]
     Route: 048
     Dates: start: 20041110
  7. COLCHICINE [Concomitant]
     Route: 048
     Dates: start: 20041110
  8. LANSOPRAZOLE [Concomitant]
     Route: 048
  9. SIMVASTATIN [Concomitant]
     Route: 048
  10. DIHYDROCODEINE BITARTRATE INJ [Concomitant]
     Route: 048
     Dates: start: 19940101
  11. ENALAPRIL MALEATE [Concomitant]
     Route: 048
     Dates: start: 20051109
  12. PARACETAMOL [Concomitant]
     Route: 048

REACTIONS (3)
  - MALAISE [None]
  - PRESYNCOPE [None]
  - VASODILATION PROCEDURE [None]
